FAERS Safety Report 5279574-7 (Version None)
Quarter: 2007Q1

REPORT INFORMATION
  Report Type: 
  Country: None (occurrence: None)
  Receive Date: 20070328
  Receipt Date: 20070319
  Transmission Date: 20070707
  Serious: Yes (Hospitalization, Other)
  Sender: FDA-Public Use
  Company Number: DE-PFIZER INC-2007021560

PATIENT
  Age: 77 Year
  Sex: Female

DRUGS (6)
  1. ZOLOFT [Suspect]
     Indication: DEPRESSION
     Dosage: DAILY DOSE:100MG
     Route: 048
     Dates: start: 20060603, end: 20060622
  2. ALL OTHER THERAPEUTIC PRODUCTS [Suspect]
     Dosage: DAILY DOSE:12.5MG
     Route: 048
  3. VESDIL 5 PLUS [Suspect]
     Dosage: DAILY DOSE:5MG
     Route: 048
  4. ZOPICLONE [Concomitant]
     Dosage: DAILY DOSE:15MG
     Route: 048
  5. SULPIRIDE [Concomitant]
     Dates: start: 20060602, end: 20060626
  6. METOPROLOL SUCCINATE [Concomitant]
     Dosage: DAILY DOSE:95MG

REACTIONS (3)
  - ANKLE FRACTURE [None]
  - FALL [None]
  - HYPONATRAEMIA [None]
